FAERS Safety Report 8254967-4 (Version None)
Quarter: 2012Q2

REPORT INFORMATION
  Report Type: 
  Country: None (occurrence: None)
  Receive Date: 20120403
  Receipt Date: 20120329
  Transmission Date: 20120825
  Serious: No
  Sender: FDA-Public Use
  Company Number: US-PFIZER INC-2012080962

PATIENT
  Sex: Female
  Weight: 61.224 kg

DRUGS (7)
  1. PROCARDIA XL [Suspect]
     Indication: ANGINA PECTORIS
     Dosage: 30 MG, 1X/DAY
     Route: 048
  2. NIFEDIPINE [Suspect]
     Indication: ANGINA PECTORIS
     Dosage: 30 MG, 1X/DAY
     Route: 048
  3. NIFEDIPINE [Suspect]
     Indication: HEART RATE IRREGULAR
     Dosage: UNK
     Route: 048
  4. OMEPRAZOLE [Concomitant]
     Indication: GASTROOESOPHAGEAL REFLUX DISEASE
     Dosage: UNK
  5. PROCARDIA XL [Suspect]
     Indication: HEART RATE IRREGULAR
  6. LANOXIN [Suspect]
     Indication: CARDIAC DISORDER
     Dosage: UNK, 1X/DAY
     Route: 048
  7. LANOXIN [Suspect]
     Dosage: UNK
     Route: 048

REACTIONS (4)
  - LIVER DISORDER [None]
  - HEART RATE DECREASED [None]
  - MEDICATION RESIDUE [None]
  - RENAL DISORDER [None]
